FAERS Safety Report 8003018-5 (Version None)
Quarter: 2011Q4

REPORT INFORMATION
  Report Type: 
  Country: None (occurrence: None)
  Receive Date: 20111222
  Receipt Date: 20110902
  Transmission Date: 20120403
  Serious: No
  Sender: FDA-Public Use
  Company Number: US-GLAXOSMITHKLINE-A0943356A

PATIENT
  Age: 74 Year
  Sex: Female

DRUGS (2)
  1. AVODART [Suspect]
     Indication: ALOPECIA
     Route: 048
     Dates: start: 20090101
  2. NO CONCURRENT MEDICATION [Concomitant]

REACTIONS (2)
  - OVARIAN CYST [None]
  - DRUG ADMINISTRATION ERROR [None]
